FAERS Safety Report 14631310 (Version 2)
Quarter: 2018Q1

REPORT INFORMATION
  Report Type: Spontaneous
  Country: US (occurrence: US)
  Receive Date: 20180313
  Receipt Date: 20180316
  Transmission Date: 20180509
  Serious: Yes (Other)
  Sender: FDA-Public Use
  Company Number: US-TEIKOKU PHARMA USA-TPU2018-00189

PATIENT
  Sex: Female
  Weight: 83.54 kg

DRUGS (1)
  1. LIDOCAINE PATCH [Suspect]
     Active Substance: LIDOCAINE
     Indication: DIABETIC NEUROPATHY
     Dosage: 1/2 PATCH ON TOP OF TOES ON LEFT FOOT EVERY TWELVE HOURS, ON AND TWELVE HOURS OFF
     Route: 061
     Dates: start: 2006

REACTIONS (7)
  - Cardiac operation [Unknown]
  - Fall [Unknown]
  - Spinal operation [Unknown]
  - Hip fracture [Unknown]
  - Rotator cuff syndrome [Unknown]
  - Hip arthroplasty [Unknown]
  - Rotator cuff repair [Unknown]

NARRATIVE: CASE EVENT DATE: 2017
